FAERS Safety Report 20299533 (Version 1)
Quarter: 2022Q1

REPORT INFORMATION
  Report Type: Spontaneous
  Country: CN (occurrence: CN)
  Receive Date: 20220105
  Receipt Date: 20220105
  Transmission Date: 20220423
  Serious: Yes (Death)
  Sender: FDA-Public Use
  Company Number: CN-PFIZER INC-202101840362

PATIENT
  Age: 62 Year
  Sex: Male

DRUGS (2)
  1. VORICONAZOLE [Suspect]
     Active Substance: VORICONAZOLE
     Dosage: UNK
  2. AMPHOTERICIN B [Suspect]
     Active Substance: AMPHOTERICIN B

REACTIONS (1)
  - Fungal infection [Fatal]
